FAERS Safety Report 19575158 (Version 1)
Quarter: 2021Q3

REPORT INFORMATION
  Report Type: Spontaneous
  Country: US (occurrence: US)
  Receive Date: 20210716
  Receipt Date: 20210716
  Transmission Date: 20211014
  Serious: No
  Sender: FDA-Public Use
  Company Number: None

PATIENT
  Age: 1 Year
  Sex: Male
  Weight: 9.98 kg

DRUGS (2)
  1. ALPROLIX [Suspect]
     Active Substance: EFTRENONACOG ALFA
     Indication: FACTOR IX DEFICIENCY
     Dosage: ?          OTHER FREQUENCY:WEEKLY;?
     Route: 042
     Dates: start: 20210701, end: 20210713
  2. ALPROLIX [Concomitant]
     Active Substance: EFTRENONACOG ALFA
     Dates: start: 20210701, end: 20210713

REACTIONS (1)
  - Urticaria [None]

NARRATIVE: CASE EVENT DATE: 20210713
